FAERS Safety Report 22093325 (Version 2)
Quarter: 2023Q2

REPORT INFORMATION
  Report Type: Spontaneous
  Country: US (occurrence: US)
  Receive Date: 20230314
  Receipt Date: 20230612
  Transmission Date: 20230722
  Serious: Yes (Death, Other)
  Sender: FDA-Public Use
  Company Number: US-BRISTOL-MYERS SQUIBB COMPANY-2023-036713

PATIENT
  Age: 68 Year
  Sex: Male

DRUGS (2)
  1. OPDIVO [Suspect]
     Active Substance: NIVOLUMAB
     Indication: Lung neoplasm malignant
     Dosage: PRESENTATION: 2 X 240 MG OPDIVO VIALS, 2 X 50 MG VIALS EVERY 6 WEEKS
     Route: 042
     Dates: start: 202212
  2. YERVOY [Suspect]
     Active Substance: IPILIMUMAB
     Indication: Lung neoplasm malignant
     Dosage: PRESENTATION: 2 X 240 MG OPDIVO VIALS, 2 X 50 MG VIALS EVERY 6 WEEKS
     Route: 042
     Dates: start: 202212

REACTIONS (2)
  - Death [Fatal]
  - Off label use [Unknown]
